FAERS Safety Report 10247535 (Version 2)
Quarter: 2014Q2

REPORT INFORMATION
  Report Type: Spontaneous
  Country: US (occurrence: US)
  Receive Date: 20140619
  Receipt Date: 20140630
  Transmission Date: 20141212
  Serious: Yes (Death)
  Sender: FDA-Public Use
  Company Number: US-JNJFOC-20140612919

PATIENT
  Age: 67 Year
  Sex: Female
  Weight: 77.1 kg

DRUGS (6)
  1. IMBRUVICA [Suspect]
     Indication: MANTLE CELL LYMPHOMA
     Route: 048
     Dates: start: 20140127
  2. VELCADE [Concomitant]
  3. RITUXAN [Concomitant]
  4. MAGACE [Concomitant]
  5. ZOFRAN                             /00955301/ [Concomitant]
  6. COMPAZINE [Concomitant]

REACTIONS (2)
  - Death [Fatal]
  - Disease progression [Unknown]
